FAERS Safety Report 10037956 (Version 1)
Quarter: 2014Q1

REPORT INFORMATION
  Report Type: Spontaneous
  Country: FR (occurrence: FR)
  Receive Date: 20140326
  Receipt Date: 20140326
  Transmission Date: 20141002
  Serious: Yes (Other)
  Sender: FDA-Public Use
  Company Number: FR-MYLANLABS-2014S1006278

PATIENT
  Age: 32 Year
  Sex: Female

DRUGS (6)
  1. CLOZAPINE [Suspect]
     Indication: SCHIZOAFFECTIVE DISORDER
     Dosage: 100 MG/D, THEN 350 MG/D
     Route: 065
  2. CLOZAPINE [Suspect]
     Indication: SCHIZOAFFECTIVE DISORDER
     Dosage: 350 MG/D, THEN 500 MG/D
     Route: 065
  3. CLOZAPINE [Suspect]
     Indication: SCHIZOAFFECTIVE DISORDER
     Dosage: GRADUALLY INCREASED TO 500 MG/D
     Route: 065
  4. VALPROATE SEMISODIUM [Concomitant]
     Dosage: 1250 MG/D
     Route: 065
  5. SCOPOLAMINE [Concomitant]
     Route: 062
  6. TRIHEXYPHENIDYL [Concomitant]
     Route: 048

REACTIONS (2)
  - Salivary hypersecretion [Unknown]
  - Parotitis [Recovering/Resolving]
